FAERS Safety Report 9889173 (Version 1)
Quarter: 2014Q1

REPORT INFORMATION
  Report Type: Spontaneous
  Country: IT (occurrence: IT)
  Receive Date: 20140211
  Receipt Date: 20140211
  Transmission Date: 20141002
  Serious: Yes (Hospitalization)
  Sender: FDA-Public Use
  Company Number: IT-ELI_LILLY_AND_COMPANY-IT201402000938

PATIENT
  Age: 76 Year
  Sex: Female

DRUGS (6)
  1. HUMULIN REGULAR [Suspect]
     Indication: TYPE 2 DIABETES MELLITUS
     Dosage: 30 U, QD
     Route: 058
     Dates: start: 20130301, end: 20130613
  2. LANTUS [Suspect]
     Indication: TYPE 2 DIABETES MELLITUS
     Dosage: 8 U, QD
     Route: 058
     Dates: start: 20130301, end: 20130613
  3. BISOPROLOL HEMIFUMARATE [Concomitant]
  4. RABEPRAZOLE SODIUM [Concomitant]
  5. LASIX                              /00032601/ [Concomitant]
  6. DELTACORTENE [Concomitant]

REACTIONS (3)
  - Hypoglycaemia [Recovered/Resolved]
  - Sopor [Recovered/Resolved]
  - Blood glucose increased [Recovered/Resolved]
